FAERS Safety Report 25341651 (Version 1)
Quarter: 2025Q2

REPORT INFORMATION
  Report Type: Spontaneous
  Country: CN (occurrence: CN)
  Receive Date: 20250521
  Receipt Date: 20250521
  Transmission Date: 20250716
  Serious: Yes (Other)
  Sender: PFIZER
  Company Number: CN-PFIZER INC-PV202500059338

PATIENT
  Age: 4 Year
  Sex: Male
  Weight: 16.5 kg

DRUGS (12)
  1. CYTARABINE [Suspect]
     Active Substance: CYTARABINE
     Indication: Acute lymphocytic leukaemia
     Dosage: 0.04 G, 1X/DAY
     Route: 037
     Dates: start: 20250505, end: 20250505
  2. METHOTREXATE SODIUM [Suspect]
     Active Substance: METHOTREXATE SODIUM
     Indication: Acute lymphocytic leukaemia
     Dosage: 12.5 MG, 1X/DAY
     Route: 037
     Dates: start: 20250505, end: 20250505
  3. METHOTREXATE SODIUM [Suspect]
     Active Substance: METHOTREXATE SODIUM
     Indication: Acute lymphocytic leukaemia
     Dosage: 460 MG, 1X/DAY (IN PUMP INJECTION)
     Dates: start: 20250505, end: 20250505
  4. METHOTREXATE SODIUM [Suspect]
     Active Substance: METHOTREXATE SODIUM
     Dosage: 1500 MG, 1X/DAY (IN PUMP INJECTION)
     Dates: start: 20250505, end: 20250505
  5. METHOTREXATE SODIUM [Suspect]
     Active Substance: METHOTREXATE SODIUM
     Dosage: 1500 MG, 1X/DAY (IN PUMP INJECTION)
     Dates: start: 20250505, end: 20250505
  6. DEXAMETHASONE SODIUM PHOSPHATE [Suspect]
     Active Substance: DEXAMETHASONE SODIUM PHOSPHATE
     Indication: Acute lymphocytic leukaemia
     Dosage: 2.5 MG, 1X/DAY
     Route: 037
     Dates: start: 20250505, end: 20250505
  7. DEXAMETHASONE SODIUM PHOSPHATE [Suspect]
     Active Substance: DEXAMETHASONE SODIUM PHOSPHATE
     Dosage: 2.5 MG, 1X/DAY
     Route: 037
     Dates: start: 20250505, end: 20250505
  8. SODIUM CHLORIDE [Concomitant]
     Active Substance: SODIUM CHLORIDE
     Indication: Vehicle solution use
     Dosage: 5 ML, 1X/DAY
     Route: 037
     Dates: start: 20250505, end: 20250505
  9. SODIUM CHLORIDE [Concomitant]
     Active Substance: SODIUM CHLORIDE
     Dosage: 5 ML, 1X/DAY
     Route: 037
     Dates: start: 20250505, end: 20250505
  10. SODIUM CHLORIDE [Concomitant]
     Active Substance: SODIUM CHLORIDE
     Dosage: 100 ML, 1X/DAY (IN PUMP INJECTION)
     Dates: start: 20250505, end: 20250505
  11. SODIUM CHLORIDE [Concomitant]
     Active Substance: SODIUM CHLORIDE
     Dosage: 500 ML, 1X/DAY (IN PUMP INJECTION)
     Dates: start: 20250505, end: 20250505
  12. SODIUM CHLORIDE [Concomitant]
     Active Substance: SODIUM CHLORIDE
     Dosage: 500 ML, 1X/DAY (IN PUMP INJECTION)
     Dates: start: 20250505, end: 20250505

REACTIONS (2)
  - Drug level increased [Recovering/Resolving]
  - Blood creatinine increased [Recovering/Resolving]

NARRATIVE: CASE EVENT DATE: 20250507
